FAERS Safety Report 9263315 (Version 1)
Quarter: 2013Q2

REPORT INFORMATION
  Report Type: Spontaneous
  Country: US (occurrence: US)
  Receive Date: 20130430
  Receipt Date: 20130430
  Transmission Date: 20140414
  Serious: No
  Sender: FDA-Public Use
  Company Number: US-ABBOTT-12P-163-1015938-00

PATIENT
  Sex: Female
  Weight: 54.48 kg

DRUGS (1)
  1. CREON [Suspect]
     Indication: PANCREATIC INSUFFICIENCY
     Dosage: 24 TID
     Dates: start: 20120917

REACTIONS (1)
  - Aphthous stomatitis [Recovered/Resolved]
